FAERS Safety Report 6124140-4 (Version None)
Quarter: 2009Q1

REPORT INFORMATION
  Report Type: 
  Country: None (occurrence: None)
  Receive Date: 20090316
  Receipt Date: 20090126
  Transmission Date: 20090719
  Serious: No
  Sender: FDA-Public Use
  Company Number: DSA_33123_2009

PATIENT
  Sex: Male

DRUGS (1)
  1. XENAZINE [Suspect]
     Indication: CHOREA
     Dosage: (12.5 MG QD)
     Dates: start: 20090125

REACTIONS (10)
  - ANXIETY [None]
  - BALANCE DISORDER [None]
  - DEPRESSION [None]
  - FEELING ABNORMAL [None]
  - MALAISE [None]
  - MOOD SWINGS [None]
  - NERVOUSNESS [None]
  - RHINORRHOEA [None]
  - SOMNOLENCE [None]
  - TREMOR [None]
